FAERS Safety Report 5234723-1 (Version None)
Quarter: 2007Q1

REPORT INFORMATION
  Report Type: 
  Country: None (occurrence: None)
  Receive Date: 20070209
  Receipt Date: 20070206
  Transmission Date: 20070707
  Serious: Yes (Other)
  Sender: FDA-Public Use
  Company Number: DE-SHR-DE-2007-004205

PATIENT
  Sex: Male

DRUGS (1)
  1. ULTRAVIST 300 [Suspect]
     Dosage: UNK, 1 DOSE

REACTIONS (2)
  - CIRCULATORY COLLAPSE [None]
  - DYSPNOEA [None]
